FAERS Safety Report 6405854-5 (Version None)
Quarter: 2009Q4

REPORT INFORMATION
  Report Type: 
  Country: None (occurrence: None)
  Receive Date: 20091019
  Receipt Date: 20091008
  Transmission Date: 20100525
  Serious: Yes (Other)
  Sender: FDA-Public Use
  Company Number: BE-JNJFOC-20091002598

PATIENT
  Age: 20 Year
  Sex: Female

DRUGS (4)
  1. REMICADE [Suspect]
     Route: 042
     Dates: end: 20090930
  2. REMICADE [Suspect]
     Route: 042
     Dates: end: 20090930
  3. REMICADE [Suspect]
     Indication: PSORIASIS
     Dosage: 4 INFUSIONS
     Route: 042
     Dates: end: 20090930
  4. METHYLPREDNISOLONE SODIUM SUCCINATE [Concomitant]
     Indication: PREMEDICATION

REACTIONS (8)
  - DYSPNOEA [None]
  - ERYTHEMA [None]
  - FALL [None]
  - INFUSION RELATED REACTION [None]
  - NEUROGENIC SHOCK [None]
  - PULMONARY TUBERCULOSIS [None]
  - SHOCK [None]
  - TACHYCARDIA [None]
